FAERS Safety Report 12773931 (Version 1)
Quarter: 2016Q3

REPORT INFORMATION
  Report Type: Report from Study
  Country: CA (occurrence: CA)
  Receive Date: 20160923
  Receipt Date: 20160923
  Transmission Date: 20161109
  Serious: Yes (Other)
  Sender: FDA-Public Use
  Company Number: CA-ROCHE-1833206

PATIENT
  Age: 58 Year
  Sex: Female
  Weight: 88.4 kg

DRUGS (7)
  1. BEVACIZUMAB [Suspect]
     Active Substance: BEVACIZUMAB
     Dosage: COURSE 3?THERAPY INTERRUPTED DUE TO AN UNSPECIFIED REASON
     Route: 042
     Dates: start: 20110414
  2. TEMSIROLIMUS [Suspect]
     Active Substance: TEMSIROLIMUS
     Dosage: COURSE 5?THERAPY DISCONTINUED AFTER CYCLE 6 DUE TO DISEASE PROGRESSION AND RELAPSE DURING ACTIVE THE
     Route: 042
     Dates: start: 20110609, end: 20110728
  3. TEMSIROLIMUS [Suspect]
     Active Substance: TEMSIROLIMUS
     Indication: OVARIAN NEOPLASM
     Dosage: COURSE 1
     Route: 042
     Dates: start: 20110217
  4. TEMSIROLIMUS [Suspect]
     Active Substance: TEMSIROLIMUS
     Dosage: COURSE 4
     Route: 042
     Dates: start: 20110602
  5. BEVACIZUMAB [Suspect]
     Active Substance: BEVACIZUMAB
     Indication: OVARIAN NEOPLASM
     Dosage: THERAPY INTERRUPTED
     Route: 042
     Dates: start: 20110217
  6. BEVACIZUMAB [Suspect]
     Active Substance: BEVACIZUMAB
     Dosage: COURSE 5?THERAPY RESUMED AND DISCONTINUED AFTER CYCLE 6 DUE TO DISEASE PROGRESSION AND RELAPSE DURIN
     Route: 042
     Dates: start: 20110609, end: 20110728
  7. TEMSIROLIMUS [Suspect]
     Active Substance: TEMSIROLIMUS
     Dosage: COURSE 3
     Route: 042
     Dates: start: 20110414

REACTIONS (2)
  - Pruritus [Unknown]
  - Urticaria [Unknown]
